FAERS Safety Report 5375787-4 (Version None)
Quarter: 2007Q2

REPORT INFORMATION
  Report Type: 
  Country: None (occurrence: None)
  Receive Date: 20070628
  Receipt Date: 20070619
  Transmission Date: 20071010
  Serious: Yes (Death, Other)
  Sender: FDA-Public Use
  Company Number: 163-21880-07051012

PATIENT
  Age: 63 Year
  Sex: Male

DRUGS (4)
  1. REVLIMID (LENALIDOMIDE) (25 MILLIGRAM, CAPSULES) [Suspect]
     Indication: RENAL CANCER METASTATIC
     Dosage: 25 MG, DAILY X  21 DAYS, ORAL
     Route: 048
     Dates: start: 20070322, end: 20070401
  2. REVLIMID (LENALIDOMIDE) (25 MILLIGRAM, CAPSULES) [Suspect]
     Indication: RENAL CANCER METASTATIC
     Dosage: 25 MG, DAILY X  21 DAYS, ORAL
     Route: 048
     Dates: start: 20070411, end: 20070418
  3. BLOOD TRANSFUSION (BLOOD AND RELATED PRODUCTS) [Concomitant]
  4. PAIN MEDICATION [Concomitant]

REACTIONS (7)
  - ANXIETY [None]
  - DYSPNOEA PAROXYSMAL NOCTURNAL [None]
  - HAEMOGLOBIN DECREASED [None]
  - MALIGNANT NEOPLASM PROGRESSION [None]
  - METASTASES TO BONE [None]
  - METASTASES TO LUNG [None]
  - RENAL CANCER METASTATIC [None]
